FAERS Safety Report 8465386-X (Version None)
Quarter: 2012Q2

REPORT INFORMATION
  Report Type: 
  Country: None (occurrence: None)
  Receive Date: 20120626
  Receipt Date: 20120614
  Transmission Date: 20120825
  Serious: Yes (Other)
  Sender: FDA-Public Use
  Company Number: JP-PFIZER INC-2012138798

PATIENT
  Age: 53 Year
  Sex: Female

DRUGS (5)
  1. GASLON [Concomitant]
  2. HYALURONATE SODIUM [Concomitant]
     Dosage: UNK
     Dates: start: 20120507, end: 20120608
  3. XYLOCAINE [Concomitant]
     Dosage: UNK
     Dates: start: 20120507, end: 20120608
  4. DECADRON [Concomitant]
     Dosage: UNK
     Dates: start: 20120507, end: 20120608
  5. CELEBREX [Suspect]
     Indication: OSTEOARTHRITIS
     Dosage: 100 MG, 2X/DAY
     Route: 048
     Dates: start: 20120507, end: 20120518

REACTIONS (1)
  - TOXIC SKIN ERUPTION [None]
